FAERS Safety Report 23332212 (Version 1)
Quarter: 2023Q4

REPORT INFORMATION
  Report Type: Spontaneous
  Country: US (occurrence: US)
  Receive Date: 20231222
  Receipt Date: 20231222
  Transmission Date: 20240110
  Serious: No
  Sender: FDA-Public Use
  Company Number: US-NEUROCRINE BIOSCIENCES INC.-2023NBI10846

PATIENT
  Age: 63 Year
  Sex: Female

DRUGS (17)
  1. INGREZZA [Suspect]
     Active Substance: VALBENAZINE
     Indication: Tardive dyskinesia
     Route: 065
  2. ESTRADIOL [Concomitant]
     Active Substance: ESTRADIOL
     Route: 048
  3. FLUTICASONE PROPIONATE [Concomitant]
     Active Substance: FLUTICASONE PROPIONATE
  4. INSULIN LISPRO [Concomitant]
     Active Substance: INSULIN LISPRO
  5. HYDROCHLOROTHIAZIDE\IRBESARTAN [Concomitant]
     Active Substance: HYDROCHLOROTHIAZIDE\IRBESARTAN
  6. KLONOPIN [Concomitant]
     Active Substance: CLONAZEPAM
  7. LAMOTRIGINE [Concomitant]
     Active Substance: LAMOTRIGINE
  8. LANTUS [Concomitant]
     Active Substance: INSULIN GLARGINE
  9. LEVOTHYROXINE [Concomitant]
     Active Substance: LEVOTHYROXINE
  10. LOPERAMIDE [Concomitant]
     Active Substance: LOPERAMIDE
  11. MEDROXYPROGESTERONE [Concomitant]
     Active Substance: MEDROXYPROGESTERONE
  12. GUAIFENESIN [Concomitant]
     Active Substance: GUAIFENESIN
  13. MUPIROCIN [Concomitant]
     Active Substance: MUPIROCIN
  14. PRIMIDONE [Concomitant]
     Active Substance: PRIMIDONE
  15. PRISTIQ EXTENDED-RELEASE [Concomitant]
     Active Substance: DESVENLAFAXINE SUCCINATE
     Dosage: 50 MILLIGRAM, QD
     Route: 048
  16. TIZANIDINE [Concomitant]
     Active Substance: TIZANIDINE
  17. VITAMIN D3 [Concomitant]
     Active Substance: CHOLECALCIFEROL

REACTIONS (2)
  - Emotional distress [Unknown]
  - Tardive dyskinesia [Recovered/Resolved]
